FAERS Safety Report 10457256 (Version 6)
Quarter: 2019Q1

REPORT INFORMATION
  Report Type: Report from Study
  Country: NL (occurrence: NL)
  Receive Date: 20140916
  Receipt Date: 20190218
  Transmission Date: 20190417
  Serious: Yes (Hospitalization, Other)
  Sender: FDA-Public Use
  Company Number: NL-BRISTOL-MYERS SQUIBB COMPANY-21342902

PATIENT
  Age: 36 Year
  Sex: Female

DRUGS (5)
  1. CELECOXIB. [Concomitant]
     Active Substance: CELECOXIB
     Indication: PRODUCT USED FOR UNKNOWN INDICATION
     Route: 065
  2. TRANDOLAPRIL. [Concomitant]
     Active Substance: TRANDOLAPRIL
     Indication: PRODUCT USED FOR UNKNOWN INDICATION
     Route: 065
  3. ABATACEPT [Suspect]
     Active Substance: ABATACEPT
     Indication: RHEUMATOID ARTHRITIS
     Dosage: UNK
     Route: 042
     Dates: end: 20140902
  4. PREDNISONE. [Concomitant]
     Active Substance: PREDNISONE
     Indication: PRODUCT USED FOR UNKNOWN INDICATION
     Dosage: 10 MG, UNK
     Route: 065
  5. METHOTREXATE. [Concomitant]
     Active Substance: METHOTREXATE
     Indication: PRODUCT USED FOR UNKNOWN INDICATION
     Route: 065

REACTIONS (10)
  - Pyrexia [Unknown]
  - Diarrhoea [Unknown]
  - Rheumatoid arthritis [Unknown]
  - Headache [Unknown]
  - Aspiration joint [Unknown]
  - Type 2 diabetes mellitus [Not Recovered/Not Resolved]
  - Vomiting [Unknown]
  - Pruritus [Recovered/Resolved]
  - Synovial cyst [Unknown]
  - Synovitis [Unknown]

NARRATIVE: CASE EVENT DATE: 2014
